FAERS Safety Report 7308232-X (Version None)
Quarter: 2011Q1

REPORT INFORMATION
  Report Type: 
  Country: None (occurrence: None)
  Receive Date: 20110223
  Receipt Date: 20110214
  Transmission Date: 20110831
  Serious: Yes (Death, Hospitalization, Other)
  Sender: FDA-Public Use
  Company Number: US-PURDUE-USA-2010-0054316

PATIENT
  Sex: Female
  Weight: 54.875 kg

DRUGS (2)
  1. OXYCONTIN [Suspect]
     Indication: OSTEOARTHRITIS
  2. OXYCONTIN [Suspect]
     Indication: RHEUMATOID ARTHRITIS
     Dosage: 40 MG, TID
     Dates: start: 20100625

REACTIONS (3)
  - LARGE INTESTINE PERFORATION [None]
  - INFECTION [None]
  - CONSTIPATION [None]
